FAERS Safety Report 7870079-3 (Version None)
Quarter: 2011Q4

REPORT INFORMATION
  Report Type: 
  Country: None (occurrence: None)
  Receive Date: 20111027
  Receipt Date: 20111019
  Transmission Date: 20120403
  Serious: Yes (Other)
  Sender: FDA-Public Use
  Company Number: 1000024806

PATIENT
  Age: 87 Year
  Sex: Female

DRUGS (7)
  1. MULTAQ [Suspect]
     Dates: start: 20110101
  2. MULTAQ [Suspect]
     Dates: end: 20110701
  3. BENICAR [Concomitant]
  4. TIAZAC [Suspect]
     Indication: ATRIAL FIBRILLATION
     Dosage: 240 MG (240 MG, 1 IN 1 D), ORAL
     Route: 048
     Dates: start: 20110508, end: 20110701
  5. LASIX [Concomitant]
  6. LIPITOR [Suspect]
     Dosage: 10 MG (10 MG, 1 IN 1 D)
     Dates: end: 20110701
  7. WARFARIN SODIUM [Concomitant]

REACTIONS (1)
  - HEPATIC ENZYME INCREASED [None]
